FAERS Safety Report 13388411 (Version 1)
Quarter: 2017Q1

REPORT INFORMATION
  Report Type: Spontaneous
  Country: US (occurrence: US)
  Receive Date: 20170330
  Receipt Date: 20170330
  Transmission Date: 20170429
  Serious: Yes (Life-Threatening, Other)
  Sender: FDA-Public Use
  Company Number: US-MYLANLABS-2017M1019758

PATIENT

DRUGS (3)
  1. PARACETAMOL [Concomitant]
     Active Substance: ACETAMINOPHEN
     Indication: CRYING
     Route: 065
  2. LIDOCAINE. [Suspect]
     Active Substance: LIDOCAINE
     Dosage: 2 %; DUE TO CONFUSION BROTHER WAS ACCIDENTALLY ADDING THIS TO MILK
     Route: 048
  3. LIDOCAINE. [Suspect]
     Active Substance: LIDOCAINE
     Indication: TEETHING
     Dosage: 2 %
     Route: 061

REACTIONS (5)
  - Generalised tonic-clonic seizure [Unknown]
  - Accidental overdose [Recovering/Resolving]
  - Cardiac arrest [Recovering/Resolving]
  - Accidental exposure to product [Recovering/Resolving]
  - Toxicity to various agents [Recovering/Resolving]
